FAERS Safety Report 10267393 (Version 1)
Quarter: 2014Q2

REPORT INFORMATION
  Report Type: Spontaneous
  Country: FR (occurrence: FR)
  Receive Date: 20140630
  Receipt Date: 20140630
  Transmission Date: 20141212
  Serious: Yes (Hospitalization)
  Sender: FDA-Public Use
  Company Number: FR-TEVA-489835ISR

PATIENT
  Age: 17 Year
  Sex: Female

DRUGS (1)
  1. LEELOO [Suspect]
     Indication: ORAL CONTRACEPTION
     Route: 048
     Dates: start: 201305, end: 20130821

REACTIONS (6)
  - Deep vein thrombosis [Recovered/Resolved]
  - Hypoaesthesia [Unknown]
  - Peripheral swelling [Unknown]
  - Cyanosis [Unknown]
  - Pain in extremity [Unknown]
  - Fall [Unknown]
